FAERS Safety Report 25182781 (Version 1)
Quarter: 2025Q2

REPORT INFORMATION
  Report Type: Spontaneous
  Country: US (occurrence: US)
  Receive Date: 20250410
  Receipt Date: 20250410
  Transmission Date: 20250716
  Serious: Yes (Hospitalization, Other)
  Sender: AUROBINDO
  Company Number: US-MLMSERVICE-20250320-PI452275-00312-1

PATIENT
  Age: 38 Year
  Sex: Male

DRUGS (1)
  1. TESTOSTERONE [Suspect]
     Active Substance: TESTOSTERONE
     Indication: Hypogonadism
     Route: 030

REACTIONS (8)
  - Cerebral infarction [Unknown]
  - Acute myocardial infarction [Unknown]
  - Dilated cardiomyopathy [Unknown]
  - Coronary artery occlusion [Unknown]
  - Cardiac ventricular thrombosis [Unknown]
  - Renal vascular thrombosis [Unknown]
  - Peripheral artery thrombosis [Unknown]
  - Hypercoagulation [Unknown]
